FAERS Safety Report 7886411-0 (Version None)
Quarter: 2011Q4

REPORT INFORMATION
  Report Type: 
  Country: None (occurrence: None)
  Receive Date: 20111102
  Receipt Date: 20110705
  Transmission Date: 20120403
  Serious: No
  Sender: FDA-Public Use
  Company Number: US-AMGEN-USASP2011034068

PATIENT
  Age: 44 Year
  Sex: Male
  Weight: 73.923 kg

DRUGS (7)
  1. TRAMADOL HCL [Concomitant]
     Dosage: 50 MG, UNK
     Route: 048
  2. ENBREL [Suspect]
     Indication: PRODUCT USED FOR UNKNOWN INDICATION
     Dosage: 50 MG, QWK
     Route: 058
  3. DAYPRO [Concomitant]
     Dosage: 600 MG, UNK
     Route: 048
  4. PROTONIX [Concomitant]
     Dosage: 20 MG, UNK
     Route: 048
  5. SKELAXIN [Concomitant]
     Dosage: 800 MG, UNK
     Route: 048
  6. FLEXERIL [Concomitant]
     Dosage: 10 MG, UNK
     Route: 048
  7. VICODIN [Concomitant]
     Route: 048

REACTIONS (2)
  - INJECTION SITE SWELLING [None]
  - INJECTION SITE HAEMATOMA [None]
